FAERS Safety Report 8462239 (Version 5)
Quarter: 2012Q4

REPORT INFORMATION
  Report Type: 
  Country: JP (occurrence: JP)
  Receive Date: 20120316
  Receipt Date: 20121101
  Transmission Date: 20130627
  Serious: Yes (Hospitalization, Other)
  Sender: FDA-Public Use
  Company Number: JP-BIOGENIDEC-2012BI008878

PATIENT
  Age: 56 Year
  Sex: Male
  Weight: 60 kg

DRUGS (13)
  1. AVONEX [Suspect]
     Indication: MULTIPLE SCLEROSIS
     Route: 030
     Dates: start: 20101209, end: 201110
  2. STEROIDS [Concomitant]
  3. GASTER [Concomitant]
     Route: 048
  4. BASEN OD [Concomitant]
     Route: 048
  5. JUVELA N [Concomitant]
     Route: 048
  6. GASCON [Concomitant]
     Route: 048
  7. WARFARIN [Concomitant]
     Route: 048
  8. MAGLAX [Concomitant]
     Route: 048
  9. BONALON [Concomitant]
     Route: 048
  10. PROGRAF [Concomitant]
     Indication: MULTIPLE SCLEROSIS
     Route: 048
  11. PROGRAF [Concomitant]
     Indication: CHRONIC INFLAMMATORY DEMYELINATING POLYRADICULONEUROPATHY
     Route: 048
  12. PREDONINE [Concomitant]
     Indication: MULTIPLE SCLEROSIS
     Route: 048
  13. PREDONINE [Concomitant]
     Indication: CHRONIC INFLAMMATORY DEMYELINATING POLYRADICULONEUROPATHY
     Route: 048

REACTIONS (6)
  - Chronic inflammatory demyelinating polyradiculoneuropathy [Unknown]
  - Skin ulcer [Recovered/Resolved]
  - Infected skin ulcer [Recovered/Resolved]
  - Injection site induration [Recovered/Resolved]
  - Diabetes mellitus [Unknown]
  - Injection site infection [Recovered/Resolved]
